FAERS Safety Report 13075315 (Version 1)
Quarter: 2016Q4

REPORT INFORMATION
  Report Type: Spontaneous
  Country: None (occurrence: IT)
  Receive Date: 20161230
  Receipt Date: 20161230
  Transmission Date: 20170207
  Serious: Yes (Hospitalization)
  Sender: FDA-Public Use
  Company Number: IT-MEDAC PHARMA, INC.-1061409

PATIENT
  Age: 13 Year
  Sex: Female
  Weight: 56 kg

DRUGS (3)
  1. METHOTREXATE (METHOTREXATE SODIUM) [Suspect]
     Active Substance: METHOTREXATE SODIUM
     Route: 059
     Dates: start: 20151010, end: 20161212
  2. HUMIRA [Suspect]
     Active Substance: ADALIMUMAB
     Route: 059
     Dates: start: 20151010, end: 20161212
  3. LEVOTHYROXINE. [Concomitant]
     Active Substance: LEVOTHYROXINE
     Route: 048

REACTIONS (1)
  - Follicular thyroid cancer [Recovered/Resolved]

NARRATIVE: CASE EVENT DATE: 20161212
